FAERS Safety Report 8512883-4 (Version None)
Quarter: 2012Q3

REPORT INFORMATION
  Report Type: 
  Country: None (occurrence: None)
  Receive Date: 20120716
  Receipt Date: 20120710
  Transmission Date: 20120928
  Serious: Yes (Hospitalization)
  Sender: FDA-Public Use
  Company Number: FR-UCBSA-061468

PATIENT
  Age: 79 Year
  Sex: Female

DRUGS (4)
  1. KEPPRA [Suspect]
     Dosage: UNKNOWN INTRODUCTION DOSE
     Route: 048
     Dates: start: 20120610, end: 20120601
  2. SPIRONOLACTONE/ALTIZIDE [Suspect]
     Dosage: 1 UNIT DAILY
     Route: 048
     Dates: end: 20120620
  3. NEXIUM [Suspect]
     Dosage: 20 MG DAILY
     Route: 048
     Dates: start: 20120610, end: 20120620
  4. KEPPRA [Suspect]
     Indication: EPILEPSY
     Route: 048
     Dates: start: 20120601, end: 20120620

REACTIONS (2)
  - THROMBOCYTOPENIA [None]
  - WHITE BLOOD CELL COUNT DECREASED [None]
